FAERS Safety Report 9707482 (Version 1)
Quarter: 2013Q4

REPORT INFORMATION
  Report Type: Spontaneous
  Country: US (occurrence: US)
  Receive Date: 20131125
  Receipt Date: 20131125
  Transmission Date: 20140711
  Serious: No
  Sender: FDA-Public Use
  Company Number: US-TEVA-374697USA

PATIENT
  Age: 25 Year
  Sex: Female
  Weight: 64.01 kg

DRUGS (4)
  1. PARAGARD 380A [Suspect]
     Dates: start: 20121130
  2. MELOXICAM [Concomitant]
  3. PROVIGIL [Concomitant]
  4. LEVSIN [Concomitant]

REACTIONS (3)
  - Muscle spasms [Unknown]
  - Vaginal haemorrhage [Unknown]
  - Device dislocation [Unknown]
